FAERS Safety Report 14724275 (Version 1)
Quarter: 2018Q2

REPORT INFORMATION
  Report Type: Spontaneous
  Country: US (occurrence: US)
  Receive Date: 20180405
  Receipt Date: 20180405
  Transmission Date: 20180711
  Serious: Yes (Other)
  Sender: FDA-Public Use
  Company Number: US-TEVA-2018-US-877339

PATIENT
  Age: 2 Year
  Sex: Female

DRUGS (2)
  1. MELPHALAN. [Suspect]
     Active Substance: MELPHALAN
     Indication: RETINOBLASTOMA
     Route: 013
  2. SALINE [Concomitant]
     Active Substance: SODIUM CHLORIDE
     Route: 013

REACTIONS (1)
  - Bone marrow failure [Unknown]
